FAERS Safety Report 24178790 (Version 4)
Quarter: 2024Q3

REPORT INFORMATION
  Report Type: Report from Study
  Country: CA (occurrence: CA)
  Receive Date: 20240806
  Receipt Date: 20240817
  Transmission Date: 20241016
  Serious: Yes (Life-Threatening)
  Sender: NOVARTIS
  Company Number: CA-002147023-NVSC2024CA159053

PATIENT
  Age: 72 Year
  Sex: Female

DRUGS (4)
  1. FEMARA [Suspect]
     Active Substance: LETROZOLE
     Indication: Breast cancer metastatic
     Dosage: 2.5 MG
     Route: 048
     Dates: start: 20240612, end: 20240625
  2. FEMARA [Suspect]
     Active Substance: LETROZOLE
     Dosage: UNK
     Route: 065
     Dates: start: 20240710, end: 20240714
  3. KISQALI [Suspect]
     Active Substance: RIBOCICLIB
     Indication: Breast cancer metastatic
     Dosage: 600 MG, QD
     Route: 048
     Dates: start: 20240812
  4. KISQALI [Suspect]
     Active Substance: RIBOCICLIB
     Dosage: 400 MG, QD
     Route: 065

REACTIONS (7)
  - Feeling abnormal [Unknown]
  - Illness [Unknown]
  - Diarrhoea [Unknown]
  - Vomiting [Recovered/Resolved]
  - Hot flush [Unknown]
  - Freezing phenomenon [Unknown]
  - Malaise [Unknown]
